FAERS Safety Report 9512048 (Version 2)
Quarter: 2014Q1

REPORT INFORMATION
  Report Type: Spontaneous
  Country: US (occurrence: None)
  Receive Date: 20130305
  Receipt Date: 20140306
  Transmission Date: 20141002
  Serious: Yes (Hospitalization, Disabling, Other)
  Sender: FDA-Public Use
  Company Number: 163-21880-12102456

PATIENT
  Age: 66 Year
  Sex: Female

DRUGS (4)
  1. REVLIMID [Suspect]
     Indication: PLASMA CELL MYELOMA
     Dosage: 25 MG, 21 IN 21 D
     Route: 048
     Dates: start: 20120814
  2. DEXAMETHASONE (DEXAMETHASONE) [Concomitant]
  3. SYNTHROID (LEVOTHYROXINE SODIUM ) [Concomitant]
  4. CIPRO [Concomitant]

REACTIONS (6)
  - Sepsis [None]
  - Clostridium difficile infection [None]
  - Diverticulitis [None]
  - Dyspepsia [None]
  - Constipation [None]
  - Diarrhoea [None]
